FAERS Safety Report 7198018-1 (Version None)
Quarter: 2010Q4

REPORT INFORMATION
  Report Type: 
  Country: None (occurrence: None)
  Receive Date: 20101227
  Receipt Date: 20101119
  Transmission Date: 20110411
  Serious: Yes (Hospitalization, Other)
  Sender: FDA-Public Use
  Company Number: US-BAYER-201023198NA

PATIENT
  Sex: Female
  Weight: 67.727 kg

DRUGS (15)
  1. YASMIN [Suspect]
     Indication: CONTRACEPTION
     Route: 048
     Dates: start: 20051201, end: 20080601
  2. YASMIN [Suspect]
     Indication: ACNE
  3. YASMIN [Suspect]
     Indication: PREMENSTRUAL SYNDROME
  4. ADDERALL 10 [Concomitant]
     Indication: ATTENTION DEFICIT/HYPERACTIVITY DISORDER
  5. CEPHALEXIN [Concomitant]
  6. BENZACLIN [Concomitant]
  7. RETIN-A MICRO [Concomitant]
  8. NITROFURANTOIN [Concomitant]
  9. OMEPRAZOLE [Concomitant]
     Dosage: UNK
     Dates: start: 20080630
  10. PREDNISONE [Concomitant]
  11. PREVACID [Concomitant]
  12. MEDROL [Concomitant]
  13. ATARAX [Concomitant]
  14. BENADRYL [Concomitant]
  15. COLACE [Concomitant]

REACTIONS (14)
  - ALOPECIA [None]
  - ANXIETY [None]
  - DEEP VEIN THROMBOSIS [None]
  - DYSPNOEA [None]
  - EPISTAXIS [None]
  - FEELING COLD [None]
  - HAND DEFORMITY [None]
  - HYPOAESTHESIA [None]
  - JOINT CREPITATION [None]
  - OEDEMA PERIPHERAL [None]
  - PULMONARY EMBOLISM [None]
  - RAYNAUD'S PHENOMENON [None]
  - SKIN DISCOLOURATION [None]
  - THORACIC OUTLET SYNDROME [None]
